FAERS Safety Report 13818834 (Version 1)
Quarter: 2017Q3

REPORT INFORMATION
  Report Type: Spontaneous
  Country: US (occurrence: US)
  Receive Date: 20170801
  Receipt Date: 20170801
  Transmission Date: 20171127
  Serious: No
  Sender: FDA-Public Use
  Company Number: US-009507513-1707USA009061

PATIENT
  Age: 22 Year
  Sex: Female
  Weight: 58.96 kg

DRUGS (1)
  1. NUVARING [Suspect]
     Active Substance: ETHINYL ESTRADIOL\ETONOGESTREL
     Indication: CONTRACEPTION
     Dosage: 1 RING,QM (0.12/0.015 MG/DAY,CONTINUOUSLY FOR THREE WEEKS,FOLLOWED BY A ONE-WEEK RING-FREE INTERVAL)
     Route: 067

REACTIONS (3)
  - Product colour issue [Unknown]
  - Intentional product misuse [Unknown]
  - Vaginal haemorrhage [Unknown]

NARRATIVE: CASE EVENT DATE: 20170714
